FAERS Safety Report 24801672 (Version 1)
Quarter: 2025Q1

REPORT INFORMATION
  Report Type: Spontaneous
  Country: US (occurrence: US)
  Receive Date: 20250102
  Receipt Date: 20250102
  Transmission Date: 20250409
  Serious: No
  Sender: Norvium Bioscience
  Company Number: US-Norvium Bioscience LLC-079750

PATIENT
  Sex: Female

DRUGS (1)
  1. DESVENLAFAXINE [Suspect]
     Active Substance: DESVENLAFAXINE
     Indication: Product used for unknown indication

REACTIONS (2)
  - Product substitution issue [Unknown]
  - Drug ineffective [Unknown]
